FAERS Safety Report 21927151 (Version 1)
Quarter: 2023Q1

REPORT INFORMATION
  Report Type: Spontaneous
  Country: US (occurrence: US)
  Receive Date: 20230130
  Receipt Date: 20230130
  Transmission Date: 20230418
  Serious: Yes (Other)
  Sender: FDA-Public Use
  Company Number: US-PFIZER INC-2020461777

PATIENT
  Age: 65 Year
  Sex: Female
  Weight: 56.7 kg

DRUGS (1)
  1. XELJANZ XR [Suspect]
     Active Substance: TOFACITINIB CITRATE
     Indication: Rheumatoid arthritis
     Dosage: 11 MG, 1X/DAY [ONCE A DAY IN THE MORNING]
     Route: 048
     Dates: start: 2020

REACTIONS (2)
  - Spinal disorder [Unknown]
  - Malaise [Unknown]
